FAERS Safety Report 9542410 (Version 2)
Quarter: 2013Q4

REPORT INFORMATION
  Report Type: Spontaneous
  Country: JP (occurrence: JP)
  Receive Date: 20130923
  Receipt Date: 20131007
  Transmission Date: 20140711
  Serious: Yes (Hospitalization)
  Sender: FDA-Public Use
  Company Number: JP-PFIZER INC-2013270479

PATIENT
  Age: 51 Year
  Sex: Female

DRUGS (7)
  1. ADRIACIN [Suspect]
     Indication: INVASIVE DUCTAL BREAST CARCINOMA
     Dosage: CYCLIC, TOTAL AMOUNT 360 MG/M2
  2. CYCLOPHOSPHAMIDE [Suspect]
     Indication: INVASIVE DUCTAL BREAST CARCINOMA
     Dosage: CYCLIC, TOTAL AMOUNT 3600 MG/M2
  3. TAMOXIFEN CITRATE [Suspect]
     Indication: INVASIVE DUCTAL BREAST CARCINOMA
     Dosage: UNK
     Route: 048
  4. DOCETAXEL [Suspect]
     Indication: INVASIVE DUCTAL BREAST CARCINOMA
     Dosage: CYCLIC, TOTAL AMOUNT 1080 MG/M2
  5. TRASTUZUMAB [Suspect]
  6. LUTEINIZING HORMONE [Suspect]
     Indication: HORMONE THERAPY
  7. METASTRON [Suspect]

REACTIONS (2)
  - Second primary malignancy [Recovering/Resolving]
  - Acute myeloid leukaemia [Recovering/Resolving]
